FAERS Safety Report 13466220 (Version 1)
Quarter: 2017Q2

REPORT INFORMATION
  Report Type: Spontaneous
  Country: US (occurrence: US)
  Receive Date: 20170420
  Receipt Date: 20170420
  Transmission Date: 20170830
  Serious: Yes (Hospitalization)
  Sender: FDA-Public Use
  Company Number: None

PATIENT
  Age: 28 Year
  Sex: Female

DRUGS (4)
  1. CEFAZOLIN [Suspect]
     Active Substance: CEFAZOLIN
     Indication: POST PROCEDURAL INFECTION
     Dosage: 2 GM Q8H IV PUSH
     Route: 042
     Dates: start: 20170303, end: 20170321
  2. CEFAZOLIN [Suspect]
     Active Substance: CEFAZOLIN
     Indication: ARTHRITIS INFECTIVE
     Dosage: 2 GM Q8H IV PUSH
     Route: 042
     Dates: start: 20170303, end: 20170321
  3. CEFAZOLIN 10 GM SAGENT [Suspect]
     Active Substance: CEFAZOLIN
     Indication: POST PROCEDURAL INFECTION
     Dosage: 2 GM Q8H IV PUSH
     Route: 042
     Dates: start: 20170303, end: 20170321
  4. CEFAZOLIN 10 GM SAGENT [Suspect]
     Active Substance: CEFAZOLIN
     Indication: ARTHRITIS INFECTIVE
     Dosage: 2 GM Q8H IV PUSH
     Route: 042
     Dates: start: 20170303, end: 20170321

REACTIONS (2)
  - Headache [None]
  - Rash generalised [None]

NARRATIVE: CASE EVENT DATE: 20170322
